FAERS Safety Report 15355440 (Version 1)
Quarter: 2018Q3

REPORT INFORMATION
  Report Type: Spontaneous
  Country: US (occurrence: US)
  Receive Date: 20180906
  Receipt Date: 20180906
  Transmission Date: 20181010
  Serious: No
  Sender: FDA-Public Use
  Company Number: US-AUROBINDO-AUR-APU-2018-020426

PATIENT
  Sex: Female
  Weight: 53 kg

DRUGS (1)
  1. OXYCODONE+ACETAMINOPHEN 10MG/325MG [Suspect]
     Active Substance: ACETAMINOPHEN\OXYCODONE HYDROCHLORIDE
     Indication: PAIN MANAGEMENT
     Dosage: UNK
     Route: 065
     Dates: start: 20180209, end: 20180223

REACTIONS (3)
  - Malaise [Recovering/Resolving]
  - Emotional disorder [Unknown]
  - Product physical issue [Unknown]
